FAERS Safety Report 5273721-9 (Version None)
Quarter: 2007Q1

REPORT INFORMATION
  Report Type: 
  Country: None (occurrence: None)
  Receive Date: 20070323
  Receipt Date: 20050811
  Transmission Date: 20070707
  Serious: Yes (Death, Hospitalization)
  Sender: FDA-Public Use
  Company Number: 200517198GDDC

PATIENT
  Age: 85 Year
  Sex: Male

DRUGS (3)
  1. FLAGYL [Suspect]
     Dosage: DOSE: UNK
     Route: 048
     Dates: start: 20050201, end: 20050301
  2. RIFATER [Suspect]
     Dosage: DOSE: UNK
     Route: 048
     Dates: start: 20050201, end: 20050301
  3. MAXIPIME [Suspect]
     Dosage: DOSE: UNK
     Dates: start: 20050201, end: 20050301

REACTIONS (7)
  - ANURIA [None]
  - COMA HEPATIC [None]
  - COMA URAEMIC [None]
  - HEPATITIS FULMINANT [None]
  - INFLAMMATION [None]
  - PYREXIA [None]
  - RENAL FAILURE ACUTE [None]
